FAERS Safety Report 8935274 (Version 3)
Quarter: 2012Q4

REPORT INFORMATION
  Report Type: 
  Country: US (occurrence: US)
  Receive Date: 20121129
  Receipt Date: 20121214
  Transmission Date: 20130627
  Serious: Yes (Death)
  Sender: FDA-Public Use
  Company Number: PHEH2012US022610

PATIENT
  Age: 62 Year
  Sex: Female
  Weight: 160.2 kg

DRUGS (16)
  1. GILENYA [Suspect]
     Indication: MULTIPLE SCLEROSIS RELAPSE
     Dosage: 0.5 mg, QD
     Route: 048
     Dates: start: 20120625
  2. ALBUTEROL [Concomitant]
     Dosage: 90 ug, UNK
  3. ALENDRONATE SODIUM [Concomitant]
     Dosage: 1 DF, QW
     Route: 048
  4. AMLODIPINE BESILATE [Concomitant]
     Dosage: 1 DF, QD
     Route: 048
  5. CRANBERRY BERCO [Concomitant]
     Dosage: 1 DF, QD
     Route: 048
  6. CROMOLYN [Concomitant]
     Dosage: 2 drp, PRN
     Route: 047
  7. FLUTICASONE [Concomitant]
     Dosage: 2 OT, QD
     Route: 045
  8. LEVOTHYROXIN [Concomitant]
     Dosage: 1 DF, QD
     Route: 048
  9. LOSARTAN [Concomitant]
     Dosage: 50 mg, QD
     Route: 048
  10. MULTI-VIT [Concomitant]
     Dosage: 1 DF, QD
     Route: 048
  11. OXYBUTYNIN [Concomitant]
     Dosage: 2 DF, QD
     Route: 048
  12. PROAIR HFA [Concomitant]
     Dosage: 2 OT, QD
  13. SINGULAIR [Concomitant]
     Dosage: 1 DF, QD
     Route: 048
  14. SPIRIVA [Concomitant]
     Dosage: 1 DF, UNK
  15. SUCRALFATE [Concomitant]
     Dosage: 1 DF, QD
     Route: 048
  16. VIT D3 [Concomitant]
     Dosage: 1 DF, QD
     Route: 048

REACTIONS (3)
  - Death [Fatal]
  - Ill-defined disorder [Fatal]
  - Constipation [Unknown]
